FAERS Safety Report 26130262 (Version 1)
Quarter: 2025Q4

REPORT INFORMATION
  Report Type: Spontaneous
  Country: US (occurrence: None)
  Receive Date: 20251205
  Receipt Date: 20251205
  Transmission Date: 20260118
  Serious: Yes (Disabling, Other)
  Sender: FDA-CTU
  Company Number: None

PATIENT
  Age: 39 Year
  Sex: Male
  Weight: 90 kg

DRUGS (2)
  1. 7-HYDROXYMITRAGYNINE [Suspect]
     Active Substance: 7-HYDROXYMITRAGYNINE
     Indication: Analgesic therapy
     Dosage: OTHER QUANTITY : 4 TABLET(S);
     Route: 048
     Dates: start: 20250902, end: 20251202
  2. 7-HYDROXYMITRAGYNINE [Suspect]
     Active Substance: 7-HYDROXYMITRAGYNINE
     Indication: Social anxiety disorder

REACTIONS (15)
  - Drug dependence [None]
  - Withdrawal syndrome [None]
  - Insomnia [None]
  - Depression [None]
  - Anxiety [None]
  - Feeling abnormal [None]
  - Hyperhidrosis [None]
  - Tremor [None]
  - Chills [None]
  - Diarrhoea [None]
  - Restless arm syndrome [None]
  - Restless legs syndrome [None]
  - Fatigue [None]
  - Apathy [None]
  - Impaired quality of life [None]

NARRATIVE: CASE EVENT DATE: 20251202
